FAERS Safety Report 8493439-9 (Version None)
Quarter: 2012Q3

REPORT INFORMATION
  Report Type: 
  Country: None (occurrence: None)
  Receive Date: 20120706
  Receipt Date: 20120625
  Transmission Date: 20120928
  Serious: Yes (Life-Threatening)
  Sender: FDA-Public Use
  Company Number: JP-BRISTOL-MYERS SQUIBB COMPANY-16556300

PATIENT
  Age: 46 Year
  Sex: Male
  Weight: 83 kg

DRUGS (15)
  1. ABILIFY [Suspect]
     Indication: TORTICOLLIS
     Dosage: 31MAR2010 TO 27APR2012:12MG;28D 28APR2010 TO 29MAY2011:24MG;397D
     Route: 048
     Dates: start: 20100331, end: 20110529
  2. METFORMIN HCL [Concomitant]
     Dosage: TABS
     Dates: start: 20100526, end: 20110529
  3. JUVELA [Concomitant]
     Dosage: UNK TO 29MAY2011,TABS
     Dates: end: 20110529
  4. DANTRIUM [Concomitant]
     Dosage: UNK TO 29MAY2011,CAPS
     Dates: end: 20110529
  5. BIPERIDEN HYDROCHLORIDE TAB [Concomitant]
  6. FLUNITRAZEPAM [Concomitant]
     Dosage: UNK TO 29MAY2011,TABS
     Dates: end: 20110529
  7. TIZANIDINE HYDROCHLORIDE [Concomitant]
     Dosage: UNK TO 29MAY2011,TABS
     Dates: end: 20110529
  8. MAGMITT [Concomitant]
     Dosage: UNK TO 29MAY2011,TABS
     Dates: end: 20110529
  9. VOGLIBOSE [Concomitant]
     Dosage: TABS
  10. LITHIUM CARBONATE [Concomitant]
     Dosage: 1 DF = TABLET
     Dates: end: 20110529
  11. ABILIFY [Suspect]
     Indication: SCHIZOPHRENIA
     Dosage: 31MAR2010 TO 27APR2012:12MG;28D 28APR2010 TO 29MAY2011:24MG;397D
     Route: 048
     Dates: start: 20100331, end: 20110529
  12. IBUPROFEN [Concomitant]
  13. ALOSENN [Concomitant]
     Dosage: UNK TO 29MAY2011,GRANULES
     Dates: end: 20110529
  14. CLONAZEPAM [Concomitant]
  15. BASEN [Concomitant]
     Dosage: UNK TO 29MAY2011,TABS
     Dates: end: 20110529

REACTIONS (3)
  - ABSCESS NECK [None]
  - DIABETIC KETOACIDOSIS [None]
  - ABSCESS LIMB [None]
